FAERS Safety Report 14274304 (Version 1)
Quarter: 2017Q4

REPORT INFORMATION
  Report Type: Spontaneous
  Country: US (occurrence: US)
  Receive Date: 20171211
  Receipt Date: 20171211
  Transmission Date: 20180321
  Serious: Yes (Hospitalization)
  Sender: FDA-Public Use
  Company Number: US-OTSUKA-2017_010106

PATIENT
  Age: 24 Year
  Sex: Male

DRUGS (1)
  1. ABILIFY [Suspect]
     Active Substance: ARIPIPRAZOLE
     Indication: BIPOLAR DISORDER
     Dosage: UNK
     Route: 065
     Dates: start: 20031002, end: 20130512

REACTIONS (6)
  - Emotional distress [Unknown]
  - Impulsive behaviour [Unknown]
  - Gambling disorder [Recovered/Resolved]
  - Obsessive-compulsive disorder [Unknown]
  - Injury [Unknown]
  - Mental disorder [Unknown]

NARRATIVE: CASE EVENT DATE: 20060313
